FAERS Safety Report 12637455 (Version 1)
Quarter: 2016Q3

REPORT INFORMATION
  Report Type: Spontaneous
  Country: US (occurrence: US)
  Receive Date: 20160809
  Receipt Date: 20160809
  Transmission Date: 20161109
  Serious: No
  Sender: FDA-Public Use
  Company Number: US-BEH-2016062623

PATIENT
  Age: 43 Year
  Sex: Female
  Weight: 105 kg

DRUGS (16)
  1. ALEVE [Suspect]
     Active Substance: NAPROXEN SODIUM
  2. IMURAN [Concomitant]
     Active Substance: AZATHIOPRINE
  3. L-M-X [Concomitant]
  4. PRIVIGEN [Suspect]
     Active Substance: HUMAN IMMUNOGLOBULIN G
     Indication: MULTIPLE SCLEROSIS
     Route: 042
  5. PROZAC [Concomitant]
     Active Substance: FLUOXETINE HYDROCHLORIDE
  6. DIPHENHYDRAMINE. [Concomitant]
     Active Substance: DIPHENHYDRAMINE
  7. MULTIVITAMIN CONCENTRATE [Concomitant]
     Dosage: INFUSION
     Route: 042
  8. CYANOCOBALAMIN. [Concomitant]
     Active Substance: CYANOCOBALAMIN
  9. PRIVIGEN [Suspect]
     Active Substance: HUMAN IMMUNOGLOBULIN G
     Indication: NEUROMYELITIS OPTICA SPECTRUM DISORDER
     Route: 042
  10. ULTRAM [Concomitant]
     Active Substance: TRAMADOL HYDROCHLORIDE
  11. ACETAMINOPHEN. [Concomitant]
     Active Substance: ACETAMINOPHEN
  12. SODIUM CHLORIDE. [Concomitant]
     Active Substance: SODIUM CHLORIDE
  13. EPIPEN [Concomitant]
     Active Substance: EPINEPHRINE
  14. VITAMIN D [Concomitant]
     Active Substance: CHOLECALCIFEROL
  15. ASPIRIN. [Concomitant]
     Active Substance: ASPIRIN
  16. TRILEPTAL [Concomitant]
     Active Substance: OXCARBAZEPINE

REACTIONS (1)
  - Lip swelling [Recovered/Resolved]

NARRATIVE: CASE EVENT DATE: 201603
